FAERS Safety Report 7335813-X (Version None)
Quarter: 2011Q1

REPORT INFORMATION
  Report Type: 
  Country: None (occurrence: None)
  Receive Date: 20110307
  Receipt Date: 20110302
  Transmission Date: 20110831
  Serious: Yes (Death, Hospitalization, Other)
  Sender: FDA-Public Use
  Company Number: GB-ROCHE-680914

PATIENT
  Sex: Male
  Weight: 88.8 kg

DRUGS (26)
  1. TOCILIZUMAB [Suspect]
     Dosage: LAST DOSE PRIOR TO SAE: 26 JUNE 2009. PERMANENTLY DISCOTINUED.
     Route: 042
     Dates: end: 20100101
  2. NEXIUM [Concomitant]
     Dosage: ONLY AM DAILY
  3. ASPIRIN [Concomitant]
     Dates: start: 20080822
  4. OXYNORM [Concomitant]
  5. CITALOPRAM [Concomitant]
  6. CALCICHEW [Concomitant]
     Dates: start: 19991203
  7. CITALOPRAM [Concomitant]
     Dates: start: 20061024
  8. TRAMADOL HCL [Concomitant]
  9. TOCILIZUMAB [Suspect]
     Indication: RHEUMATOID ARTHRITIS
     Dosage: FORM REPORTED AS INFUSION SOLUTION
     Route: 042
     Dates: start: 20060101
  10. PREDNISOLONE [Concomitant]
     Dates: start: 20061222
  11. CALCICHEW [Concomitant]
     Dates: start: 20040116
  12. METHOTREXATE [Suspect]
     Indication: RHEUMATOID ARTHRITIS
     Dosage: THE PATIENT WAS PREVIOUSLY ENROLLED IN WA18062
     Route: 065
  13. FOLIC ACID [Concomitant]
     Dates: start: 20070611
  14. FOLIC ACID [Concomitant]
     Dosage: 1 TABLET DAILY
  15. SIMVASTATIN [Concomitant]
     Dates: start: 20080822
  16. NEXIUM [Concomitant]
     Dates: start: 20050526
  17. CYCLIZINE [Concomitant]
  18. TOCILIZUMAB [Suspect]
     Dosage: DRUG TEMPORIRILY INTERRUPTED IN MAY 2009, FORM REPORTED AS INFUSION SOLUTION
     Route: 042
     Dates: start: 20060621, end: 20090501
  19. PLACEBO [Suspect]
     Indication: RHEUMATOID ARTHRITIS
     Dosage: THE PATIENT WAS PREVIOUSLY ENROLLED IN WA18062
     Route: 042
  20. FOLIC ACID [Concomitant]
     Dates: start: 19990101
  21. PREDNISOLONE [Concomitant]
     Dates: start: 20031024
  22. PREDNISOLONE [Concomitant]
  23. PREDNISOLONE [Concomitant]
  24. PARACETAMOL [Concomitant]
     Dates: start: 20051208
  25. OXYCONTIN [Concomitant]
  26. MOVIPREP [Concomitant]
     Dosage: 1 SACHET TWO TIMES DAILY

REACTIONS (2)
  - LUNG SQUAMOUS CELL CARCINOMA STAGE I [None]
  - GASTROINTESTINAL HAEMORRHAGE [None]
